FAERS Safety Report 8895075 (Version 1)
Quarter: 2012Q4

REPORT INFORMATION
  Report Type: 
  Country: AR (occurrence: AR)
  Receive Date: 20121108
  Receipt Date: 20121108
  Transmission Date: 20130627
  Serious: Yes (Other)
  Sender: FDA-Public Use
  Company Number: PHHY2012AR101889

PATIENT
  Sex: Female

DRUGS (3)
  1. ACETYLSALICYLIC ACID [Suspect]
  2. DICLOFENAC [Suspect]
  3. PARACETAMOL [Suspect]

REACTIONS (3)
  - Angioedema [Unknown]
  - Bronchospasm [Unknown]
  - Urticaria [Unknown]
